FAERS Safety Report 10673640 (Version 9)
Quarter: 2017Q2

REPORT INFORMATION
  Report Type: Report from Study
  Country: IL (occurrence: IL)
  Receive Date: 20141224
  Receipt Date: 20170510
  Transmission Date: 20170829
  Serious: Yes (Hospitalization, Other)
  Sender: FDA-Public Use
  Company Number: PHHY2014IL162485

PATIENT
  Age: 74 Year
  Sex: Female

DRUGS (7)
  1. PREGABALIN. [Concomitant]
     Active Substance: PREGABALIN
     Indication: PAIN IN EXTREMITY
     Route: 065
  2. ENALAPRIL MALEATE. [Concomitant]
     Active Substance: ENALAPRIL MALEATE
     Indication: HYPERTENSION
     Dosage: UNK
     Route: 065
  3. ATORVASTATIN CALCIUM. [Concomitant]
     Active Substance: ATORVASTATIN CALCIUM
     Indication: HYPERCHOLESTEROLAEMIA
     Route: 065
  4. SANDOSTATIN LAR DEPOT [Suspect]
     Active Substance: OCTREOTIDE ACETATE
     Indication: CARCINOID TUMOUR
     Dosage: 30 MG, QMO (EVERY 4 WEEKS)
     Route: 030
     Dates: start: 20091214
  5. SANDOSTATIN LAR DEPOT [Suspect]
     Active Substance: OCTREOTIDE ACETATE
     Indication: NEUROENDOCRINE TUMOUR
     Dosage: 30 MG, QMO (EVERY 4 WEEKS )
     Route: 030
     Dates: start: 20121212
  6. AMLODIPINE [Concomitant]
     Active Substance: AMLODIPINE BESYLATE
     Indication: HYPERTENSION
     Dosage: UNK
     Route: 065
  7. METFORMIN [Concomitant]
     Active Substance: METFORMIN HYDROCHLORIDE
     Indication: DIABETES MELLITUS
     Route: 065

REACTIONS (15)
  - Pulmonary embolism [Recovered/Resolved]
  - Metastases to lung [Not Recovered/Not Resolved]
  - Metastases to lymph nodes [Not Recovered/Not Resolved]
  - Dyspnoea [Unknown]
  - Fatigue [Unknown]
  - Feeling abnormal [Not Recovered/Not Resolved]
  - Second primary malignancy [Unknown]
  - Inflammation [Unknown]
  - Malignant neoplasm progression [Not Recovered/Not Resolved]
  - Malignant melanoma [Unknown]
  - Metastatic malignant melanoma [Not Recovered/Not Resolved]
  - Blood test abnormal [Unknown]
  - Blood pressure increased [Unknown]
  - Onychomycosis [Unknown]
  - Haemorrhage [Not Recovered/Not Resolved]

NARRATIVE: CASE EVENT DATE: 20160428
